FAERS Safety Report 5814980-0 (Version None)
Quarter: 2008Q3

REPORT INFORMATION
  Report Type: 
  Country: None (occurrence: None)
  Receive Date: 20080718
  Receipt Date: 20080709
  Transmission Date: 20090109
  Serious: Yes (Life-Threatening)
  Sender: FDA-Public Use
  Company Number: NL-JNJFOC-20080702340

PATIENT
  Sex: Female
  Weight: 54 kg

DRUGS (4)
  1. INFLIXIMAB, RECOMBINANT [Suspect]
     Route: 042
  2. INFLIXIMAB, RECOMBINANT [Suspect]
     Indication: RHEUMATOID ARTHRITIS
     Route: 042
  3. GOLD [Suspect]
     Indication: RHEUMATOID ARTHRITIS
  4. CALCICHEW D [Suspect]
     Indication: RHEUMATOID ARTHRITIS

REACTIONS (1)
  - LUNG ADENOCARCINOMA STAGE IV [None]
